FAERS Safety Report 14456557 (Version 1)
Quarter: 2018Q1

REPORT INFORMATION
  Report Type: Spontaneous
  Country: ZA (occurrence: ZA)
  Receive Date: 20180130
  Receipt Date: 20180130
  Transmission Date: 20180509
  Serious: Yes (Hospitalization)
  Sender: FDA-Public Use
  Company Number: ZA-LUPIN PHARMACEUTICALS INC.-2017-06909

PATIENT

DRUGS (7)
  1. CARVETREND TABLETS [Suspect]
     Active Substance: CARVEDILOL
     Indication: CARDIAC DISORDER
     Dosage: 25 MG, QD
     Route: 048
  2. DORMONOCT [Suspect]
     Active Substance: LOPRAZOLAM
     Indication: SLEEP DISORDER
     Dosage: 2 MG, QD
     Route: 048
  3. ENAP CO TABLET [Suspect]
     Active Substance: ENALAPRIL\HYDROCHLOROTHIAZIDE
     Indication: HYPERTENSION
     Dosage: 20/12.5 MG QD
     Route: 048
  4. VENLOR XR [Suspect]
     Active Substance: VENLAFAXINE HYDROCHLORIDE
     Indication: DEPRESSION
     Dosage: 75+150 MG QD
     Route: 048
  5. ESPIRIDE [Suspect]
     Active Substance: SULPIRIDE
     Indication: ANXIETY
     Dosage: 50 MG, QD
     Route: 048
  6. URBANOL [Suspect]
     Active Substance: CLOBAZAM
     Indication: STRESS
     Dosage: 10 MG, QD
     Route: 048
  7. TRAMAZAC CO [Suspect]
     Active Substance: ACETAMINOPHEN\TRAMADOL
     Indication: PAIN
     Dosage: 37.5/325MG QD
     Route: 048

REACTIONS (2)
  - Blood pressure increased [Unknown]
  - Drug ineffective [Unknown]
